FAERS Safety Report 5255501-3 (Version None)
Quarter: 2007Q1

REPORT INFORMATION
  Report Type: 
  Country: None (occurrence: None)
  Receive Date: 20070305
  Receipt Date: 20070220
  Transmission Date: 20070707
  Serious: Yes (Disabling)
  Sender: FDA-Public Use
  Company Number: US-ROCHE-473703

PATIENT
  Age: 17 Year
  Sex: Female

DRUGS (2)
  1. ACCUTANE [Suspect]
     Route: 048
     Dates: start: 19950615
  2. ACCUTANE [Suspect]
     Route: 048
     Dates: start: 19970615

REACTIONS (12)
  - ALOPECIA [None]
  - ANAL FISSURE [None]
  - COLITIS [None]
  - COLITIS ULCERATIVE [None]
  - EYE INFLAMMATION [None]
  - HAEMORRHAGE [None]
  - HAEMORRHOIDS [None]
  - HEADACHE [None]
  - INFLAMMATORY BOWEL DISEASE [None]
  - INTESTINAL POLYP [None]
  - PROCTITIS [None]
  - PROCTITIS ULCERATIVE [None]
